FAERS Safety Report 8215936-3 (Version None)
Quarter: 2012Q1

REPORT INFORMATION
  Report Type: 
  Country: None (occurrence: None)
  Receive Date: 20120316
  Receipt Date: 20120314
  Transmission Date: 20120608
  Serious: Yes (Disabling)
  Sender: FDA-Public Use
  Company Number: US-PFIZER INC-2011055333

PATIENT
  Sex: Male
  Weight: 91.156 kg

DRUGS (8)
  1. FENTANYL-100 [Suspect]
     Indication: SCIATICA
     Dosage: UNK
  2. TRILEPTAL [Concomitant]
     Indication: MOOD SWINGS
     Dosage: 300 MG, DAILY
  3. XANAX [Concomitant]
     Indication: ANXIETY
     Dosage: 5 MG, 2X/DAY
     Route: 048
  4. LYRICA [Suspect]
     Indication: FIBROMYALGIA
  5. TRAZODONE [Concomitant]
     Indication: MOOD SWINGS
     Dosage: 600 MG IN THE MORNING, 1200 MG AT NIGHT
  6. LYRICA [Suspect]
     Indication: PAIN
     Dosage: 75 MG, 3X/DAY
     Route: 048
     Dates: start: 20070101
  7. LYRICA [Suspect]
     Indication: NERVE INJURY
  8. OXYCODONE HCL [Suspect]
     Indication: SCIATICA
     Dosage: UNK

REACTIONS (8)
  - FEELING ABNORMAL [None]
  - DRUG INEFFECTIVE [None]
  - MUSCLE SPASMS [None]
  - IRRITABILITY [None]
  - WEIGHT INCREASED [None]
  - MUSCULOSKELETAL STIFFNESS [None]
  - PAIN [None]
  - GAIT DISTURBANCE [None]
